FAERS Safety Report 12663560 (Version 3)
Quarter: 2016Q3

REPORT INFORMATION
  Report Type: Spontaneous
  Country: KR (occurrence: KR)
  Receive Date: 20160818
  Receipt Date: 20160902
  Transmission Date: 20161109
  Serious: Yes (Hospitalization)
  Sender: FDA-Public Use
  Company Number: KR-009507513-1608KOR008477

PATIENT
  Age: 56 Year
  Sex: Female
  Weight: 63.1 kg

DRUGS (33)
  1. EMEND (FOSAPREPITANT DIMEGLUMINE) [Suspect]
     Active Substance: FOSAPREPITANT DIMEGLUMINE
     Indication: PROPHYLAXIS OF NAUSEA AND VOMITING
     Dosage: 150 MG, ONCE
     Route: 042
     Dates: start: 20160622, end: 20160622
  2. AD MYCIN VIAL [Concomitant]
     Dosage: 77 MG, QD, CYCLE 4
     Route: 042
     Dates: start: 20160823, end: 20160823
  3. CARDIOXANE [Concomitant]
     Active Substance: DEXRAZOXANE HYDROCHLORIDE
     Dosage: 770 MG, QD, CYCLE 4
     Route: 042
     Dates: start: 20160823, end: 20160823
  4. ENDOXAN [Concomitant]
     Active Substance: CYCLOPHOSPHAMIDE
     Indication: BREAST CANCER
     Dosage: 966 MG, QD, CYCLE 1
     Route: 042
     Dates: start: 20160622, end: 20160622
  5. DEXAMETHASONE. [Concomitant]
     Active Substance: DEXAMETHASONE
     Indication: PROPHYLAXIS OF NAUSEA AND VOMITING
     Dosage: 5 MG, QD, STRENGTH: 5 MG/ML
     Route: 042
     Dates: start: 20160622, end: 20160622
  6. DEXAMETHASONE. [Concomitant]
     Active Substance: DEXAMETHASONE
     Dosage: 5 MG, QD, STRENGTH: 5 MG/ML
     Route: 042
     Dates: start: 20160802, end: 20160802
  7. DEXAMETHASONE. [Concomitant]
     Active Substance: DEXAMETHASONE
     Indication: PROPHYLAXIS OF NAUSEA AND VOMITING
     Dosage: 0.5 MG, QD
     Route: 048
     Dates: start: 20160623, end: 20160625
  8. DEXAMETHASONE. [Concomitant]
     Active Substance: DEXAMETHASONE
     Dosage: 0.5 MG, QD
     Route: 048
     Dates: start: 20160824, end: 20160826
  9. EMEND (FOSAPREPITANT DIMEGLUMINE) [Suspect]
     Active Substance: FOSAPREPITANT DIMEGLUMINE
     Dosage: 150 MG, ONCE
     Route: 042
     Dates: start: 20160712, end: 20160712
  10. EMEND (FOSAPREPITANT DIMEGLUMINE) [Suspect]
     Active Substance: FOSAPREPITANT DIMEGLUMINE
     Dosage: 150 MG, ONCE
     Route: 042
     Dates: start: 20160823, end: 20160823
  11. CARDIOXANE [Concomitant]
     Active Substance: DEXRAZOXANE HYDROCHLORIDE
     Indication: BREAST CANCER
     Dosage: 966 MG, QD, CYCLE 1
     Route: 042
     Dates: start: 20160622, end: 20160622
  12. DEXAMETHASONE. [Concomitant]
     Active Substance: DEXAMETHASONE
     Dosage: 5 MG, QD, STRENGTH: 5 MG/ML
     Route: 042
     Dates: start: 20160712, end: 20160712
  13. DEXAMETHASONE. [Concomitant]
     Active Substance: DEXAMETHASONE
     Dosage: 5 MG, QD, STRENGTH: 5 MG/ML
     Route: 042
     Dates: start: 20160823, end: 20160823
  14. ALOXI [Concomitant]
     Active Substance: PALONOSETRON HYDROCHLORIDE
     Dosage: 5 ML, QD
     Route: 042
     Dates: start: 20160823, end: 20160823
  15. VIREAD [Concomitant]
     Active Substance: TENOFOVIR DISOPROXIL FUMARATE
     Indication: HEPATITIS B
     Dosage: 1 TABLET, QD
     Route: 048
     Dates: start: 20160621
  16. CARDIOXANE [Concomitant]
     Active Substance: DEXRAZOXANE HYDROCHLORIDE
     Dosage: 770 MG, QD, CYCLE 3
     Route: 042
     Dates: start: 20160802, end: 20160802
  17. DEXAMETHASONE. [Concomitant]
     Active Substance: DEXAMETHASONE
     Dosage: 0.5 MG, QD
     Route: 048
     Dates: start: 20160713, end: 20160715
  18. ALOXI [Concomitant]
     Active Substance: PALONOSETRON HYDROCHLORIDE
     Indication: PROPHYLAXIS OF NAUSEA AND VOMITING
     Dosage: 5 ML, QD
     Route: 042
     Dates: start: 20160622, end: 20160622
  19. ALOXI [Concomitant]
     Active Substance: PALONOSETRON HYDROCHLORIDE
     Dosage: 5 ML, QD
     Route: 042
     Dates: start: 20160712, end: 20160712
  20. EMEND (FOSAPREPITANT DIMEGLUMINE) [Suspect]
     Active Substance: FOSAPREPITANT DIMEGLUMINE
     Dosage: 150 MG, ONCE
     Route: 042
     Dates: start: 20160802, end: 20160802
  21. ENDOXAN [Concomitant]
     Active Substance: CYCLOPHOSPHAMIDE
     Dosage: 770 MG, QD, CYCLE 2
     Route: 042
     Dates: start: 20160712, end: 20160712
  22. ALOXI [Concomitant]
     Active Substance: PALONOSETRON HYDROCHLORIDE
     Dosage: 5 ML, QD
     Route: 042
     Dates: start: 20160802, end: 20160802
  23. EMEND (FOSAPREPITANT DIMEGLUMINE) [Suspect]
     Active Substance: FOSAPREPITANT DIMEGLUMINE
     Dosage: UNK
  24. AD MYCIN VIAL [Concomitant]
     Dosage: 77 MG, QD, CYCLE 2
     Route: 042
     Dates: start: 20160712, end: 20160712
  25. AD MYCIN VIAL [Concomitant]
     Dosage: 77 MG, QD, CYCLE 3
     Route: 042
     Dates: start: 20160802, end: 20160802
  26. ENDOXAN [Concomitant]
     Active Substance: CYCLOPHOSPHAMIDE
     Dosage: 770 MG, QD, CYCLE 3
     Route: 042
     Dates: start: 20160802, end: 20160802
  27. AD MYCIN VIAL [Concomitant]
     Indication: BREAST CANCER
     Dosage: 96 MG, QD, CYCLE 1
     Route: 042
     Dates: start: 20160622, end: 20160622
  28. CARDIOXANE [Concomitant]
     Active Substance: DEXRAZOXANE HYDROCHLORIDE
     Dosage: 770 MG, QD, CYCLE 2
     Route: 042
     Dates: start: 20160712, end: 20160712
  29. DEXAMETHASONE. [Concomitant]
     Active Substance: DEXAMETHASONE
     Dosage: 0.5 MG, QD
     Route: 048
     Dates: start: 20160803, end: 20160805
  30. ZEMIGLO [Concomitant]
     Indication: DIABETES MELLITUS
     Dosage: 1 TABLET, QD
     Route: 048
     Dates: start: 2003
  31. ENDOXAN [Concomitant]
     Active Substance: CYCLOPHOSPHAMIDE
     Dosage: 770 MG, QD, CYCLE 4
     Route: 042
     Dates: start: 20160823, end: 20160823
  32. LOZARSIN PLUS [Concomitant]
     Indication: HYPERTENSION
     Dosage: 1 TABLET, QD
     Route: 048
     Dates: start: 2006
  33. DIABEX [Concomitant]
     Active Substance: METFORMIN HYDROCHLORIDE
     Indication: DIABETES MELLITUS
     Dosage: 1 TABLET, QD
     Route: 048
     Dates: start: 2003

REACTIONS (1)
  - Pyrexia [Recovered/Resolved]

NARRATIVE: CASE EVENT DATE: 20160701
